FAERS Safety Report 19051234 (Version 2)
Quarter: 2021Q1

REPORT INFORMATION
  Report Type: Spontaneous
  Country: IT (occurrence: IT)
  Receive Date: 20210323
  Receipt Date: 20210331
  Transmission Date: 20210420
  Serious: Yes (Other)
  Sender: FDA-Public Use
  Company Number: IT-JNJFOC-20210334382

PATIENT
  Age: 83 Year
  Sex: Male
  Weight: 86 kg

DRUGS (1)
  1. STELARA [Suspect]
     Active Substance: USTEKINUMAB
     Indication: PSORIASIS
     Route: 058
     Dates: start: 20161201, end: 20201210

REACTIONS (1)
  - Pulmonary hypertension [Unknown]

NARRATIVE: CASE EVENT DATE: 20210309
